FAERS Safety Report 6898681-6 (Version None)
Quarter: 2010Q3

REPORT INFORMATION
  Report Type: 
  Country: None (occurrence: None)
  Receive Date: 20100802
  Receipt Date: 20071119
  Transmission Date: 20110219
  Serious: Yes (Other)
  Sender: FDA-Public Use
  Company Number: US-PFIZER INC-2007077665

PATIENT
  Sex: Female
  Weight: 104.5 kg

DRUGS (15)
  1. LYRICA [Suspect]
     Indication: FIBROMYALGIA
     Route: 048
     Dates: start: 20070820
  2. VALSARTAN [Concomitant]
  3. EVISTA [Concomitant]
  4. SYNTHROID [Concomitant]
  5. ZOLOFT [Concomitant]
  6. PRILOSEC [Concomitant]
  7. ALEVE (CAPLET) [Concomitant]
  8. FLEXERIL [Concomitant]
  9. XANAX [Concomitant]
  10. ACETYLSALICYLIC ACID SRT [Concomitant]
  11. VITAMIN B [Concomitant]
  12. VITAMIN E [Concomitant]
  13. VITAMIN D [Concomitant]
  14. ULTRAM [Concomitant]
  15. FLONASE [Concomitant]

REACTIONS (8)
  - ANXIETY [None]
  - BREAST CELLULITIS [None]
  - CRYING [None]
  - GAIT DISTURBANCE [None]
  - HYPOKINESIA [None]
  - LETHARGY [None]
  - OEDEMA [None]
  - SOMNOLENCE [None]
